FAERS Safety Report 11745350 (Version 2)
Quarter: 2015Q4

REPORT INFORMATION
  Report Type: Spontaneous
  Country: VE (occurrence: VE)
  Receive Date: 20151117
  Receipt Date: 20151123
  Transmission Date: 20160304
  Serious: Yes (Other)
  Sender: FDA-Public Use
  Company Number: VE-ORION CORPORATION ORION PHARMA-ENTC2015-0662

PATIENT
  Sex: Female

DRUGS (7)
  1. SINEMET [Suspect]
     Active Substance: CARBIDOPA\LEVODOPA
     Indication: PARKINSON^S DISEASE
     Route: 065
  2. AKINETON [Concomitant]
     Active Substance: BIPERIDEN HYDROCHLORIDE
     Route: 065
  3. MIRAPEX [Concomitant]
     Active Substance: PRAMIPEXOLE DIHYDROCHLORIDE
     Route: 065
  4. ASPIRIN. [Concomitant]
     Active Substance: ASPIRIN
     Route: 065
  5. STALEVO [Suspect]
     Active Substance: CARBIDOPA\ENTACAPONE\LEVODOPA
     Indication: PARKINSON^S DISEASE
     Dosage: STRENGTH: 50 MG
     Route: 048
     Dates: start: 2014, end: 201511
  6. DAFLON [Concomitant]
     Active Substance: DIOSMIN\HESPERIDIN
     Route: 065
  7. PARMITAL [Concomitant]
     Route: 065

REACTIONS (9)
  - Mental disorder [Unknown]
  - Asthenia [Unknown]
  - Muscular weakness [Unknown]
  - Speech disorder [Not Recovered/Not Resolved]
  - Crying [Unknown]
  - Abasia [Not Recovered/Not Resolved]
  - Activities of daily living impaired [Unknown]
  - Feeling abnormal [Unknown]
  - Movement disorder [Not Recovered/Not Resolved]
